FAERS Safety Report 11890612 (Version 2)
Quarter: 2019Q4

REPORT INFORMATION
  Report Type: Spontaneous
  Country: JP (occurrence: JP)
  Receive Date: 20160105
  Receipt Date: 20191223
  Transmission Date: 20200122
  Serious: Yes (Other)
  Sender: FDA-Public Use
  Company Number: JP-BAUSCH-BL-2016-000040

PATIENT
  Age: 84 Year
  Sex: Male

DRUGS (5)
  1. VINCRISTINE [Suspect]
     Active Substance: VINCRISTINE
     Indication: DIFFUSE LARGE B-CELL LYMPHOMA STAGE III
     Dosage: ON DAYS 1-5, ON A 21 DAY SCHEDULE AND THE PATIENT RECEIVED A TOAL OF 7 CYCLES OF DOSE-REDUCED R-CHOP
     Route: 065
  2. DOXORUBICIN [Suspect]
     Active Substance: DOXORUBICIN
     Indication: DIFFUSE LARGE B-CELL LYMPHOMA STAGE III
     Dosage: ON DAYS 1-5, ON A 21 DAY SCHEDULE AND THE PATIENT RECEIVED A TOAL OF 7 CYCLES OF DOSE-REDUCED R-CHOP
     Route: 065
  3. PREDNISOLONE. [Suspect]
     Active Substance: PREDNISOLONE
     Indication: DIFFUSE LARGE B-CELL LYMPHOMA STAGE III
     Dosage: ON DAYS 1-5, ON A 21 DAY SCHEDULE AND THE PATIENT RECEIVED A TOAL OF 7 CYCLES OF DOSE-REDUCED R-CHOP
     Route: 048
  4. RITUXIMAB. [Suspect]
     Active Substance: RITUXIMAB
     Indication: DIFFUSE LARGE B-CELL LYMPHOMA STAGE III
     Dosage: ON DAYS 1-5, ON A 21 DAY SCHEDULE AND THE PATIENT RECEIVED A TOAL OF 7 CYCLES OF DOSE-REDUCED R-CHOP
     Route: 065
  5. CYCLOPHOSPHAMIDE. [Suspect]
     Active Substance: CYCLOPHOSPHAMIDE
     Indication: DIFFUSE LARGE B-CELL LYMPHOMA STAGE III
     Dosage: ON DAYS 1-5, ON A 21 DAY SCHEDULE AND THE PATIENT RECEIVED A TOAL OF 7 CYCLES OF DOSE-REDUCED R-CHOP
     Route: 065

REACTIONS (1)
  - Kaposi^s sarcoma [Recovered/Resolved]
